FAERS Safety Report 13309944 (Version 1)
Quarter: 2017Q1

REPORT INFORMATION
  Report Type: Spontaneous
  Country: US (occurrence: US)
  Receive Date: 20170308
  Receipt Date: 20170308
  Transmission Date: 20170428
  Serious: No
  Sender: FDA-Public Use
  Company Number: None

PATIENT
  Sex: Female

DRUGS (1)
  1. IBRANCE [Suspect]
     Active Substance: PALBOCICLIB
     Indication: BONE CANCER
     Dosage: 75MG DAILY FOR 21 DAYS ON THEN 7 DAYS OFF BY MOUTH
     Route: 048
     Dates: start: 20160125

REACTIONS (1)
  - Enzyme level increased [None]
